FAERS Safety Report 10205969 (Version 2)
Quarter: 2014Q2

REPORT INFORMATION
  Report Type: Report from Study
  Country: US (occurrence: US)
  Receive Date: 20140530
  Receipt Date: 20140530
  Transmission Date: 20141212
  Serious: Yes (Hospitalization, Other)
  Sender: FDA-Public Use
  Company Number: US-ROCHE-1341226

PATIENT
  Sex: Male
  Weight: 96.7 kg

DRUGS (7)
  1. AVASTIN [Suspect]
     Indication: COLON CANCER
     Dosage: OFF AND ON SINCE FEB
     Route: 050
     Dates: start: 201302
  2. XELODA [Suspect]
     Indication: COLON CANCER
     Dosage: 4 TAB BID
     Route: 048
     Dates: start: 201302
  3. OMEPRAZOLE [Concomitant]
     Route: 048
  4. METOPROLOL TARTRATE [Concomitant]
     Dosage: 3 TWO TIMES DAY
     Route: 048
     Dates: start: 2012
  5. DIGOXIN [Concomitant]
     Route: 048
     Dates: start: 2012
  6. OXYCODONE [Concomitant]
     Dosage: 5/325 MG AS NEEDED FOR PAIN
     Route: 065
  7. PREDNISONE [Concomitant]
     Dosage: 2 PILLS IN THE MORNING AND 2 AT NIGHT
     Route: 065

REACTIONS (11)
  - Thrombosis [Recovered/Resolved]
  - Chills [Not Recovered/Not Resolved]
  - Anorectal infection [Not Recovered/Not Resolved]
  - Paraesthesia [Recovering/Resolving]
  - Asthenia [Not Recovered/Not Resolved]
  - Thyroid disorder [Unknown]
  - Peripheral coldness [Not Recovered/Not Resolved]
  - Thyroid cancer [Not Recovered/Not Resolved]
  - Abdominal pain upper [Recovering/Resolving]
  - Skin discolouration [Unknown]
  - Hiccups [Unknown]
